FAERS Safety Report 5273513-0 (Version None)
Quarter: 2007Q1

REPORT INFORMATION
  Report Type: 
  Country: None (occurrence: None)
  Receive Date: 20070321
  Receipt Date: 20070321
  Transmission Date: 20070707
  Serious: Yes (Other)
  Sender: FDA-Public Use
  Company Number: None

PATIENT
  Age: 14 Year
  Sex: Male

DRUGS (1)
  1. FEMARA [Suspect]
     Indication: DELAYED PUBERTY
     Dosage: 1 TABLET DAILY
     Dates: start: 20070217, end: 20070220

REACTIONS (3)
  - FATIGUE [None]
  - LETHARGY [None]
  - RASH [None]
